FAERS Safety Report 7082678-X (Version None)
Quarter: 2010Q4

REPORT INFORMATION
  Report Type: 
  Country: None (occurrence: None)
  Receive Date: 20101001
  Receipt Date: 20100827
  Transmission Date: 20110411
  Serious: No
  Sender: FDA-Public Use
  Company Number: 1000015985

PATIENT
  Age: 63 Year
  Sex: Female

DRUGS (8)
  1. BYSTOLIC [Suspect]
     Indication: HYPERTENSION
     Dosage: 5 MG (5 MG, 1 IN 1 D), ORAL
     Route: 048
     Dates: end: 20100801
  2. AMLODIPINE [Concomitant]
  3. LISINOPRIL [Concomitant]
  4. SIMVASTATIN [Concomitant]
  5. ESTRACE [Concomitant]
  6. LOSARTAN [Concomitant]
  7. NASONEX [Concomitant]
  8. TRETINOIN [Concomitant]

REACTIONS (1)
  - ABDOMINAL PAIN UPPER [None]
